FAERS Safety Report 5274810-5 (Version None)
Quarter: 2007Q1

REPORT INFORMATION
  Report Type: 
  Country: None (occurrence: None)
  Receive Date: 20070321
  Receipt Date: 20060710
  Transmission Date: 20070707
  Serious: Yes (Hospitalization)
  Sender: FDA-Public Use
  Company Number: 233096K0USA

PATIENT
  Age: 53 Year
  Sex: Male
  Weight: 83.9154 kg

DRUGS (1)
  1. REBIF [Suspect]
     Indication: MULTIPLE SCLEROSIS
     Dosage: 44 MCG, 3 IN 1 WEEEKS, SUBCUTANEOUS
     Route: 058
     Dates: start: 20050803

REACTIONS (2)
  - BLOOD CHOLESTEROL INCREASED [None]
  - CHOLELITHIASIS [None]
